FAERS Safety Report 5932982-0 (Version None)
Quarter: 2008Q4

REPORT INFORMATION
  Report Type: 
  Country: None (occurrence: None)
  Receive Date: 20081027
  Receipt Date: 20081027
  Transmission Date: 20090506
  Serious: Yes (Life-Threatening)
  Sender: FDA-Public Use
  Company Number: None

PATIENT
  Age: 49 Year
  Sex: Female
  Weight: 54.4316 kg

DRUGS (1)
  1. ACETAMINOPHEN AND TRAMADOL HCL [Suspect]
     Indication: TOOTH INFECTION
     Dosage: 2 TABLETS BY MOUTH 4-6 HRS AS NEEDED DENTAL
     Route: 004
     Dates: start: 20081014, end: 20081026

REACTIONS (6)
  - ABASIA [None]
  - EMOTIONAL DISTRESS [None]
  - MUSCLE SPASMS [None]
  - PAIN [None]
  - PARALYSIS [None]
  - WHEELCHAIR USER [None]
